FAERS Safety Report 19537880 (Version 2)
Quarter: 2021Q3

REPORT INFORMATION
  Report Type: Other
  Country: CA (occurrence: CA)
  Receive Date: 20210714
  Receipt Date: 20210804
  Transmission Date: 20211014
  Serious: Yes (Life-Threatening, Disabling, Other)
  Sender: FDA-Public Use
  Company Number: CA-APOTEX-2021AP017078

PATIENT
  Age: 65 Year
  Sex: Female
  Weight: 81.63 kg

DRUGS (3)
  1. ANTACID [CALCIUM CARBONATE] [Concomitant]
     Indication: PRODUCT USED FOR UNKNOWN INDICATION
     Dosage: UNK
     Route: 065
  2. OMEPRAZOLE. [Suspect]
     Active Substance: OMEPRAZOLE
     Indication: GASTROOESOPHAGEAL REFLUX DISEASE
     Dosage: 20 MILLIGRAM, QD
     Route: 048
  3. APO?OMEPRAZOLE [Suspect]
     Active Substance: OMEPRAZOLE
     Indication: GASTROOESOPHAGEAL REFLUX DISEASE
     Dosage: 20 MILLIGRAM, QD
     Route: 048

REACTIONS (4)
  - Treatment failure [Recovered/Resolved]
  - Non-cardiac chest pain [Recovered/Resolved]
  - Therapeutic response changed [Recovered/Resolved]
  - Impaired work ability [Recovered/Resolved]
